FAERS Safety Report 9410134 (Version 2)
Quarter: 2014Q1

REPORT INFORMATION
  Report Type: Spontaneous
  Country: US (occurrence: US)
  Receive Date: 20130719
  Receipt Date: 20140221
  Transmission Date: 20141002
  Serious: No
  Sender: FDA-Public Use
  Company Number: US-B.I. PHARMACEUTICALS,INC./RIDGEFIELD-2013-BI-20724BP

PATIENT
  Age: 71 Year
  Sex: Female

DRUGS (2)
  1. COMBIVENT [Suspect]
     Indication: DYSPNOEA
     Dosage: STRENGTH: 18 MCG/ 103 MCG; DAILY DOSE: 54 MCG/ 309 MCG
     Route: 055
     Dates: start: 2011, end: 20121231
  2. COMBIVENT [Suspect]
     Indication: DYSPNOEA
     Dosage: STRENGTH: 20 MCG / 100 MCG; DAILY DOSE: 60 MCG/300 MCG
     Route: 055
     Dates: start: 20130101

REACTIONS (4)
  - Parkinson^s disease [Not Recovered/Not Resolved]
  - Dyspnoea [Recovered/Resolved]
  - Product quality issue [Unknown]
  - Product quality issue [Unknown]
